FAERS Safety Report 7826827-1 (Version None)
Quarter: 2011Q4

REPORT INFORMATION
  Report Type: 
  Country: None (occurrence: None)
  Receive Date: 20111020
  Receipt Date: 20111007
  Transmission Date: 20120403
  Serious: Yes (Hospitalization, Other)
  Sender: FDA-Public Use
  Company Number: US-BAYER-2011-089822

PATIENT
  Age: 52 Year
  Sex: Female
  Weight: 49.8 kg

DRUGS (16)
  1. SARGRAMOSTIM [Suspect]
     Dosage: 250 ?G, QD
     Route: 058
     Dates: start: 20110815, end: 20110828
  2. MDX-010 [Suspect]
     Dosage: 10 MG/KG, ONCE
     Route: 042
     Dates: start: 20110725, end: 20110725
  3. SARGRAMOSTIM [Suspect]
     Indication: MALIGNANT MELANOMA OF SITES OTHER THAN SKIN
     Dosage: 250 ?G, QD
     Route: 058
     Dates: start: 20110906, end: 20110919
  4. CELEXA [Concomitant]
  5. MDX-010 [Suspect]
     Dosage: 10 MG/KG, ONCE
     Route: 042
     Dates: start: 20110815, end: 20110815
  6. ZOFRAN [Concomitant]
  7. COLACE [Concomitant]
  8. PHENERGAN HCL [Concomitant]
  9. SARGRAMOSTIM [Suspect]
     Dosage: 250 ?G, QD
     Route: 058
     Dates: start: 20110725, end: 20110807
  10. CITALOPRAM HYDROBROMIDE [Concomitant]
     Dosage: 40 MG, QD
  11. NEXIUM [Concomitant]
  12. CEPASTAT [Concomitant]
  13. FLONASE [Concomitant]
     Dosage: 2 SPRAYS BID
  14. MDX-010 [Suspect]
     Indication: MALIGNANT MELANOMA OF SITES OTHER THAN SKIN
     Dosage: 10 MG/KG, ONCE
     Route: 042
     Dates: start: 20110906, end: 20110906
  15. FOSAMAX [Concomitant]
     Dosage: UNK UNK, OW
  16. RYNATAN [AZATADINE MALEATE,PSEUDOEPHEDRINE SULFATE] [Concomitant]
     Dosage: 5 MG, QD

REACTIONS (17)
  - ILEUS [None]
  - WEIGHT DECREASED [None]
  - SYNCOPE [None]
  - HYPOCALCAEMIA [None]
  - BLOOD CREATININE INCREASED [None]
  - TACHYCARDIA [None]
  - AUTOIMMUNE DISORDER [None]
  - ANAEMIA [None]
  - HYPOALBUMINAEMIA [None]
  - HYPERKALAEMIA [None]
  - DIARRHOEA [None]
  - CONSTIPATION [None]
  - SMALL INTESTINAL OBSTRUCTION [None]
  - RENAL FAILURE [None]
  - HYPERGLYCAEMIA [None]
  - PYREXIA [None]
  - HYPOKALAEMIA [None]
